FAERS Safety Report 13835172 (Version 4)
Quarter: 2018Q3

REPORT INFORMATION
  Report Type: Report from Study
  Country: JP (occurrence: JP)
  Receive Date: 20170804
  Receipt Date: 20180924
  Transmission Date: 20181010
  Serious: Yes (Life-Threatening, Hospitalization, Other)
  Sender: FDA-Public Use
  Company Number: JP-BRISTOL-MYERS SQUIBB COMPANY-BMS-2017-068812

PATIENT
  Age: 67 Year
  Sex: Male

DRUGS (4)
  1. DACARBAZINE. [Suspect]
     Active Substance: DACARBAZINE
     Indication: MALIGNANT MELANOMA
     Dosage: 1000 MG/M2/DAY
     Route: 065
     Dates: start: 20140128, end: 20141006
  2. YERVOY [Suspect]
     Active Substance: IPILIMUMAB
     Indication: MALIGNANT MELANOMA
     Dosage: UNK
     Route: 041
     Dates: start: 20170612, end: 20170817
  3. NIVOLUMAB [Suspect]
     Active Substance: NIVOLUMAB
     Indication: PRODUCT USED FOR UNKNOWN INDICATION
     Dosage: 2?3 MG/KG, UNK
     Route: 041
     Dates: start: 20170605
  4. NIVOLUMAB [Suspect]
     Active Substance: NIVOLUMAB
     Indication: MALIGNANT MELANOMA STAGE IV
     Dosage: 2 MG/KG, UNK
     Route: 041
     Dates: start: 20141113, end: 20151203

REACTIONS (4)
  - Pyrexia [Recovered/Resolved]
  - C-reactive protein increased [Unknown]
  - Immune thrombocytopenic purpura [Recovering/Resolving]
  - Hepatic function abnormal [Recovering/Resolving]

NARRATIVE: CASE EVENT DATE: 20150618
